FAERS Safety Report 22269974 (Version 1)
Quarter: 2023Q2

REPORT INFORMATION
  Report Type: Spontaneous
  Country: US (occurrence: US)
  Receive Date: 20230501
  Receipt Date: 20230501
  Transmission Date: 20230721
  Serious: No
  Sender: FDA-Public Use
  Company Number: US-Calliditas-2023CAL00409

PATIENT
  Age: 39 Year
  Sex: Female

DRUGS (1)
  1. TARPEYO [Suspect]
     Active Substance: BUDESONIDE
     Indication: IgA nephropathy
     Dosage: 4 MG (4 MG CAPSULES) ONCE DAILY
     Route: 048
     Dates: start: 20230424

REACTIONS (3)
  - Prescribed underdose [Unknown]
  - Irritability [Unknown]
  - Blood pressure increased [Unknown]
